FAERS Safety Report 4498656-0 (Version None)
Quarter: 2004Q3

REPORT INFORMATION
  Report Type: 
  Country: None (occurrence: None)
  Receive Date: 20040927
  Receipt Date: 20040615
  Transmission Date: 20050211
  Serious: No
  Sender: FDA-Public Use
  Company Number: USA040670210

PATIENT
  Age: 10 Year
  Sex: Male

DRUGS (4)
  1. STRATTERA [Suspect]
     Dosage: 10 MG
  2. PAXIL [Concomitant]
  3. RISPERDAL [Concomitant]
  4. CONCERTA [Concomitant]

REACTIONS (4)
  - ANOREXIA [None]
  - CRYING [None]
  - HALLUCINATION [None]
  - THINKING ABNORMAL [None]
